FAERS Safety Report 7273699-2 (Version None)
Quarter: 2011Q1

REPORT INFORMATION
  Report Type: 
  Country: None (occurrence: None)
  Receive Date: 20110203
  Receipt Date: 20110201
  Transmission Date: 20110831
  Serious: Yes (Other)
  Sender: FDA-Public Use
  Company Number: US-ROXANE LABORATORIES, INC.-2011-RO-00135RO

PATIENT
  Sex: Male
  Weight: 70 kg

DRUGS (2)
  1. PROGRAF [Suspect]
     Indication: LIVER TRANSPLANT
     Dosage: 10 MG
     Route: 048
     Dates: start: 19970101
  2. PREDNISONE [Suspect]
     Indication: LIVER TRANSPLANT
     Dosage: 20 MG
     Dates: start: 19871224, end: 20100301

REACTIONS (3)
  - ANXIETY [None]
  - LIVER TRANSPLANT REJECTION [None]
  - MAJOR DEPRESSION [None]
